FAERS Safety Report 22196654 (Version 1)
Quarter: 2023Q2

REPORT INFORMATION
  Report Type: Other
  Country: US (occurrence: None)
  Receive Date: 20230411
  Receipt Date: 20230411
  Transmission Date: 20230722
  Serious: Yes (Hospitalization)
  Sender: FDA-Public Use
  Company Number: US-ROCHE-3323966

PATIENT
  Age: 64 Year
  Sex: Female
  Weight: 54.480 kg

DRUGS (1)
  1. OCREVUS [Suspect]
     Active Substance: OCRELIZUMAB
     Indication: Primary progressive multiple sclerosis
     Dosage: 300 MG ON DAY 1 AND DAY 15 THEN EVERY 6 MONTHS
     Route: 042
     Dates: start: 201905

REACTIONS (1)
  - COVID-19 [Recovered/Resolved]

NARRATIVE: CASE EVENT DATE: 20230301
